FAERS Safety Report 4299586-X (Version None)
Quarter: 2004Q1

REPORT INFORMATION
  Report Type: 
  Country: None (occurrence: None)
  Receive Date: 20040217
  Receipt Date: 20040203
  Transmission Date: 20041129
  Serious: Yes (Hospitalization)
  Sender: FDA-Public Use
  Company Number: 2004-00491

PATIENT
  Age: 19 Year
  Sex: Female

DRUGS (2)
  1. DICLOFENAC (WATSON LABORATORIES) (DICLOFENAC POTASSIUM) TABLET, 50MG [Suspect]
     Indication: PAIN
     Dosage: HIGH DOSES, UNK
  2. IBUPROFEN [Suspect]
     Indication: PAIN
     Dosage: HIGH DOSES, UNK

REACTIONS (2)
  - CONDITION AGGRAVATED [None]
  - NECROTISING FASCIITIS [None]
